FAERS Safety Report 9466370 (Version 1)
Quarter: 2013Q3

REPORT INFORMATION
  Report Type: Spontaneous
  Country: GB (occurrence: GB)
  Receive Date: 20130820
  Receipt Date: 20130820
  Transmission Date: 20140515
  Serious: Yes (Hospitalization)
  Sender: FDA-Public Use
  Company Number: GB-ASTRAZENECA-2013SE62494

PATIENT
  Sex: 0

DRUGS (1)
  1. XYLOCAINE WITH ADRENALINE [Suspect]
     Indication: LOCAL ANAESTHESIA
     Route: 058
     Dates: start: 20130321, end: 20130321

REACTIONS (1)
  - Presyncope [Recovered/Resolved]
